FAERS Safety Report 15956777 (Version 2)
Quarter: 2019Q1

REPORT INFORMATION
  Report Type: Spontaneous
  Country: CN (occurrence: CN)
  Receive Date: 20190213
  Receipt Date: 20190213
  Transmission Date: 20190417
  Serious: Yes (Hospitalization, Other)
  Sender: FDA-Public Use
  Company Number: PHHY2019CN030602

PATIENT
  Age: 15 Year
  Sex: Female

DRUGS (2)
  1. PREDNISOLONE. [Suspect]
     Active Substance: PREDNISOLONE
     Dosage: 10 MG, QD
     Route: 048
     Dates: start: 2016
  2. PREDNISOLONE. [Suspect]
     Active Substance: PREDNISOLONE
     Indication: MESANGIOPROLIFERATIVE GLOMERULONEPHRITIS
     Dosage: 1 MG/KG, UNK
     Route: 048

REACTIONS (2)
  - Arteriosclerosis [Recovering/Resolving]
  - Acute myocardial infarction [Recovering/Resolving]

NARRATIVE: CASE EVENT DATE: 2016
